FAERS Safety Report 6505120-3 (Version None)
Quarter: 2009Q4

REPORT INFORMATION
  Report Type: 
  Country: None (occurrence: None)
  Receive Date: 20091218
  Receipt Date: 20091209
  Transmission Date: 20100525
  Serious: Yes (Other)
  Sender: FDA-Public Use
  Company Number: PHHY2009BE48606

PATIENT

DRUGS (1)
  1. ZOMETA [Suspect]
     Indication: PROSTATE CANCER METASTATIC

REACTIONS (3)
  - ORAL DISCOMFORT [None]
  - OSTEONECROSIS [None]
  - TOOTH EXTRACTION [None]
